FAERS Safety Report 12863483 (Version 4)
Quarter: 2016Q4

REPORT INFORMATION
  Report Type: Spontaneous
  Country: JP (occurrence: JP)
  Receive Date: 20161019
  Receipt Date: 20161221
  Transmission Date: 20170207
  Serious: Yes (Hospitalization)
  Sender: FDA-Public Use
  Company Number: JP-ABBVIE-16P-087-1757374-00

PATIENT
  Age: 82 Year
  Sex: Male
  Weight: 59.6 kg

DRUGS (11)
  1. HALCION [Interacting]
     Active Substance: TRIAZOLAM
     Indication: INSOMNIA
     Route: 048
     Dates: start: 20160906, end: 20161018
  2. VASOLAN [Interacting]
     Active Substance: VERAPAMIL HYDROCHLORIDE
     Indication: HYPERTENSION
     Dosage: AFTER BREAKFAST AND SUPPER
     Route: 048
     Dates: start: 20160906, end: 20161020
  3. VASOLAN [Interacting]
     Active Substance: VERAPAMIL HYDROCHLORIDE
     Indication: ARRHYTHMIA
  4. BIFIDOBACTERIUM [Concomitant]
     Active Substance: BIFIDOBACTERIUM LONGUM
     Indication: FUNCTIONAL GASTROINTESTINAL DISORDER
     Dosage: AFTER MEALS
     Route: 048
     Dates: start: 20160906, end: 20161018
  5. CARVEDILOL. [Concomitant]
     Active Substance: CARVEDILOL
     Indication: HYPERTENSION
     Route: 048
     Dates: start: 20160906, end: 20161020
  6. ALFACALCIDOL [Concomitant]
     Active Substance: ALFACALCIDOL
     Indication: OSTEOPOROSIS
     Route: 048
     Dates: start: 20160906, end: 20161018
  7. VIEKIRAX [Suspect]
     Active Substance: OMBITASVIR\PARITAPREVIR\RITONAVIR
     Indication: CHRONIC HEPATITIS C
     Dosage: IN THE MORNING
     Route: 048
     Dates: start: 20161010, end: 20161014
  8. MECOBALAMIN [Concomitant]
     Active Substance: METHYLCOBALAMIN
     Indication: DIZZINESS
     Dosage: AFTER BREAKFAST
     Route: 048
     Dates: start: 20160906, end: 20161018
  9. WARFARIN POTASSIUM [Concomitant]
     Active Substance: WARFARIN POTASSIUM
     Indication: ARRHYTHMIA
     Dosage: AFTER BREAKFAST
     Route: 048
     Dates: start: 20160906, end: 20161020
  10. SOTALOL HYDROCHLORIDE. [Concomitant]
     Active Substance: SOTALOL HYDROCHLORIDE
     Indication: ARRHYTHMIA
     Dosage: AFTER BREAKFAST
     Route: 048
     Dates: start: 20160906, end: 20161020
  11. BETAHISTINE MESILATE [Concomitant]
     Active Substance: BETAHISTINE MESILATE
     Indication: DIZZINESS
     Dosage: AFTER MEALS
     Route: 048
     Dates: start: 20160906, end: 20161018

REACTIONS (11)
  - Dysphagia [Recovering/Resolving]
  - Altered state of consciousness [Recovered/Resolved]
  - Muscular weakness [Recovered/Resolved]
  - Drug interaction [Unknown]
  - Hypotension [Recovered/Resolved]
  - Shock [Unknown]
  - Pneumonia [Recovered/Resolved]
  - C-reactive protein decreased [Unknown]
  - Gait disturbance [Unknown]
  - Respiratory disorder [Recovering/Resolving]
  - Dizziness [Unknown]

NARRATIVE: CASE EVENT DATE: 20161012
